FAERS Safety Report 21440369 (Version 1)
Quarter: 2022Q4

REPORT INFORMATION
  Report Type: Spontaneous
  Country: US (occurrence: US)
  Receive Date: 20221011
  Receipt Date: 20221011
  Transmission Date: 20230113
  Serious: Yes (Hospitalization)
  Sender: FDA-Public Use
  Company Number: US-AMNEAL PHARMACEUTICALS-2022-AMRX-02718

PATIENT
  Age: 54 Year
  Sex: Female

DRUGS (2)
  1. LIORESAL [Suspect]
     Active Substance: BACLOFEN
     Indication: Quadriplegia
     Dosage: 60 ?G, \DAY
     Route: 037
     Dates: end: 20220112
  2. LIORESAL [Concomitant]
     Active Substance: BACLOFEN
     Route: 048

REACTIONS (3)
  - Infection [Recovered/Resolved]
  - Drug withdrawal syndrome [Recovered/Resolved]
  - Medical device removal [Recovered/Resolved]

NARRATIVE: CASE EVENT DATE: 20220112
